FAERS Safety Report 7549768-6 (Version None)
Quarter: 2011Q2

REPORT INFORMATION
  Report Type: 
  Country: None (occurrence: None)
  Receive Date: 20110615
  Receipt Date: 20080311
  Transmission Date: 20111010
  Serious: Yes (Death, Hospitalization)
  Sender: FDA-Public Use
  Company Number: PHHY2008PL03031

PATIENT

DRUGS (1)
  1. SANDOSTATIN [Suspect]
     Dosage: 30 MG FOR EVERY 28 DAYS
     Route: 030
     Dates: start: 20071231

REACTIONS (6)
  - BLOOD BILIRUBIN INCREASED [None]
  - GENERAL PHYSICAL HEALTH DETERIORATION [None]
  - CHOLANGITIS [None]
  - CHOLESTASIS [None]
  - COMA HEPATIC [None]
  - LIVER FUNCTION TEST ABNORMAL [None]
